FAERS Safety Report 6619749-5 (Version None)
Quarter: 2010Q1

REPORT INFORMATION
  Report Type: 
  Country: None (occurrence: None)
  Receive Date: 20100309
  Receipt Date: 20100226
  Transmission Date: 20100710
  Serious: Yes (Other)
  Sender: FDA-Public Use
  Company Number: PHHY2010US12973

PATIENT
  Sex: Male
  Weight: 88.2 kg

DRUGS (7)
  1. EXJADE [Suspect]
     Dosage: 500 MG, BID
     Route: 048
     Dates: start: 20091124
  2. METOPROLOL TARTRATE [Concomitant]
  3. SOLIRIS [Concomitant]
  4. AMBIEN [Concomitant]
  5. RAMIPRIL [Concomitant]
  6. LASIX [Concomitant]
  7. FOLIC ACID [Concomitant]

REACTIONS (1)
  - EAR HAEMORRHAGE [None]
